FAERS Safety Report 5657202-6 (Version None)
Quarter: 2008Q1

REPORT INFORMATION
  Report Type: 
  Country: None (occurrence: None)
  Receive Date: 20080307
  Receipt Date: 20080307
  Transmission Date: 20080703
  Serious: Yes (Life-Threatening, Other)
  Sender: FDA-Public Use
  Company Number: None

PATIENT
  Age: 47 Year
  Sex: Female
  Weight: 90.7194 kg

DRUGS (2)
  1. CLINDAMYCIN   150MG CAP  WALMART [Suspect]
     Indication: DENTAL OPERATION
     Dosage: 4  DAILY  PO
     Route: 048
     Dates: start: 20080225, end: 20080306
  2. CLINDAMYCIN   150MG CAP  WALMART [Suspect]
     Indication: PROPHYLAXIS
     Dosage: 4  DAILY  PO
     Route: 048
     Dates: start: 20080225, end: 20080306

REACTIONS (3)
  - DRUG HYPERSENSITIVITY [None]
  - THERAPEUTIC PRODUCT CONTAMINATION [None]
  - URTICARIA [None]
